FAERS Safety Report 5764441-2 (Version None)
Quarter: 2008Q2

REPORT INFORMATION
  Report Type: 
  Country: None (occurrence: None)
  Receive Date: 20080610
  Receipt Date: 20080602
  Transmission Date: 20081010
  Serious: Yes (Other)
  Sender: FDA-Public Use
  Company Number: US-PFIZER INC-2008031218

PATIENT
  Sex: Female
  Weight: 59.09 kg

DRUGS (2)
  1. SOLU-MEDROL [Suspect]
     Indication: MULTIPLE SCLEROSIS
     Route: 042
     Dates: start: 20080401, end: 20080405
  2. BACLOFEN [Concomitant]
     Indication: MUSCLE SPASMS

REACTIONS (15)
  - BONE PAIN [None]
  - BURNING SENSATION [None]
  - DYSAESTHESIA [None]
  - DYSPNOEA [None]
  - ERYTHEMA [None]
  - FEELING ABNORMAL [None]
  - FLUSHING [None]
  - HYPERTENSION [None]
  - IMPAIRED DRIVING ABILITY [None]
  - IMPAIRED WORK ABILITY [None]
  - INFUSION RELATED REACTION [None]
  - MOVEMENT DISORDER [None]
  - MULTIPLE SCLEROSIS [None]
  - MYALGIA [None]
  - PAIN OF SKIN [None]
